FAERS Safety Report 9825542 (Version 1)
Quarter: 2013Q4

REPORT INFORMATION
  Report Type: Spontaneous
  Country: US (occurrence: None)
  Receive Date: 20131101
  Receipt Date: 20131101
  Transmission Date: 20140711
  Serious: Yes (Hospitalization)
  Sender: FDA-Public Use
  Company Number: 2013-01455

PATIENT
  Age: 61 Year
  Sex: Male
  Weight: 116 kg

DRUGS (9)
  1. LOSARTAN (UNKNOWN) (LOSARTAN) [Suspect]
     Indication: BLOOD PRESSURE
     Dosage: 50 MG (50 MG, 1 IN 1 D), UNKNOWN
  2. VALSARTAN [Suspect]
     Indication: PRODUCT USED FOR UNKNOWN INDICATION
     Dosage: 160 MG (160 MG, 1 IN 1 D), UNKNOWN
  3. ACETYLSALICYLIC ACID (ASPIRIN) (UNKNOWN) (ACETYLSALICYLIC ACID) [Concomitant]
  4. METFORMIN (UNKNOWN) (METFORMIN) [Concomitant]
  5. ATENOLOL (UNKNOWN) (ATENOLOL) [Concomitant]
  6. SIMVASTATIN (UNKNOWN) (SIMVASTATIN) UNK, UNKUNK [Concomitant]
  7. RANITIDINE (UNKNOWN) (RANITIDINE) [Concomitant]
  8. INSULIN (NOVOLIN 70/30) (UNKNOWN) (INSULIN)? [Concomitant]
  9. TEMAZEPAM (UNKNOWN) (TEMAZEPAM) [Concomitant]

REACTIONS (1)
  - Thrombocytopenia [None]
